FAERS Safety Report 7794159-6 (Version None)
Quarter: 2011Q4

REPORT INFORMATION
  Report Type: 
  Country: None (occurrence: None)
  Receive Date: 20111004
  Receipt Date: 20110923
  Transmission Date: 20120403
  Serious: Yes (Other)
  Sender: FDA-Public Use
  Company Number: BR-US-EMD SERONO, INC.-7085346

PATIENT
  Age: 29 Year
  Sex: Female

DRUGS (1)
  1. OVIDREL [Suspect]
     Indication: ASSISTED FERTILISATION
     Dates: start: 20110918

REACTIONS (1)
  - HAEMORRHAGE [None]
